FAERS Safety Report 8456461-4 (Version None)
Quarter: 2012Q2

REPORT INFORMATION
  Report Type: 
  Country: None (occurrence: None)
  Receive Date: 20120323
  Receipt Date: 20110916
  Transmission Date: 20120825
  Serious: Yes (Other)
  Sender: FDA-Public Use
  Company Number: 163-21880-11092180

PATIENT
  Age: 62 Year
  Sex: Female

DRUGS (16)
  1. ZOCOR (SIMVASTATIN)(UNKNOWN) [Concomitant]
  2. LEVOTHROID (LEVOTHYROXINE SODIUM)(UNKNOWN) [Concomitant]
  3. HCTZ (HYDROCHLOROTHIAZIDE)(UNKNOWN) [Concomitant]
  4. TENORMIN [Concomitant]
  5. ZESTRIL [Concomitant]
  6. DURAGESIC (FENTANYL)(UNKNOWN) [Concomitant]
  7. FLEXERIL [Concomitant]
  8. VICODIN [Concomitant]
  9. PRILOSEC (OMEPRAZOLE)(UNKNOWN) [Concomitant]
  10. PAMELOR [Concomitant]
  11. PROZAC [Concomitant]
  12. REVLIMID [Suspect]
     Indication: MULTIPLE MYELOMA
     Dosage: 15 MG, DAILY X 14/28  DAYS, PO, 15 MG, DAILY X 7 DAYS EVERY OTHER WEEK, PO
     Route: 048
     Dates: start: 20080520, end: 20100801
  13. REVLIMID [Suspect]
     Indication: MULTIPLE MYELOMA
     Dosage: 15 MG, DAILY X 14/28  DAYS, PO, 15 MG, DAILY X 7 DAYS EVERY OTHER WEEK, PO
     Route: 048
     Dates: start: 20100801, end: 20110901
  14. ASPIRIN [Concomitant]
  15. ZOFRAN [Concomitant]
  16. DECADRON [Concomitant]

REACTIONS (3)
  - HAEMOGLOBIN DECREASED [None]
  - NEUTROPHIL COUNT DECREASED [None]
  - PLATELET COUNT DECREASED [None]
